FAERS Safety Report 10737786 (Version 2)
Quarter: 2015Q1

REPORT INFORMATION
  Report Type: Report from Study
  Country: US (occurrence: US)
  Receive Date: 20150126
  Receipt Date: 20150306
  Transmission Date: 20150721
  Serious: Yes (Other)
  Sender: FDA-Public Use
  Company Number: US-CELGENEUS-USA-2015013354

PATIENT

DRUGS (1)
  1. REVLIMID [Suspect]
     Active Substance: LENALIDOMIDE
     Indication: MANTLE CELL LYMPHOMA
     Route: 048

REACTIONS (9)
  - Nausea [Unknown]
  - Neuropathy peripheral [Unknown]
  - Hypercoagulation [Unknown]
  - Cytopenia [Unknown]
  - Rash [Unknown]
  - Thrombosis [Unknown]
  - Asthenia [Unknown]
  - Stomatitis [Unknown]
  - Lethargy [Unknown]
